FAERS Safety Report 7063007-4 (Version None)
Quarter: 2010Q4

REPORT INFORMATION
  Report Type: 
  Country: None (occurrence: None)
  Receive Date: 20101026
  Receipt Date: 20100331
  Transmission Date: 20110411
  Serious: Yes (Other)
  Sender: FDA-Public Use
  Company Number: US-PFIZER INC-2010042081

PATIENT
  Sex: Male
  Weight: 82.54 kg

DRUGS (2)
  1. LIPITOR [Suspect]
     Indication: BLOOD CHOLESTEROL INCREASED
     Dosage: 20 MG, 1X/DAY
     Route: 048
     Dates: start: 20050101
  2. FLOMAX [Concomitant]
     Indication: PROSTATOMEGALY
     Dosage: UNK

REACTIONS (1)
  - MUSCULAR WEAKNESS [None]
